FAERS Safety Report 6388718-5 (Version None)
Quarter: 2009Q4

REPORT INFORMATION
  Report Type: 
  Country: None (occurrence: None)
  Receive Date: 20091005
  Receipt Date: 20090924
  Transmission Date: 20100525
  Serious: Yes (Hospitalization)
  Sender: FDA-Public Use
  Company Number: AT-ASTRAZENECA-2009SE15097

PATIENT
  Age: 84 Year
  Sex: Male

DRUGS (8)
  1. ACEMIN [Suspect]
     Route: 048
  2. LASIX [Concomitant]
     Route: 048
  3. SPIROBENE [Concomitant]
     Route: 048
  4. FEDIP [Concomitant]
     Dosage: IF REQUIRED
  5. INOTYOL [Concomitant]
     Dosage: IF REQUIRED
  6. METOCLOPRAMIDE HYDROCHLORIDE [Concomitant]
     Dosage: 4 MG/ML, IF REQUIRED
  7. SELOKEN RETARD [Concomitant]
     Dosage: 95 MG, 0.5 DF TWICE A DAY
     Route: 048
  8. TRAMAL RETARD [Concomitant]
     Dosage: IF REQUIRED
     Route: 048

REACTIONS (2)
  - HYPERKALAEMIA [None]
  - RENAL FAILURE [None]
